FAERS Safety Report 6047393-X (Version None)
Quarter: 2009Q1

REPORT INFORMATION
  Report Type: 
  Country: None (occurrence: None)
  Receive Date: 20090122
  Receipt Date: 20090115
  Transmission Date: 20090719
  Serious: Yes (Other)
  Sender: FDA-Public Use
  Company Number: GB-ROXANE LABORATORIES, INC.-2009-RO-00075RO

PATIENT

DRUGS (4)
  1. CYCLOPHOSPHAMIDE [Suspect]
  2. CELLCEPT [Suspect]
     Indication: PEMPHIGUS
  3. PREDNISOLONE [Suspect]
  4. METHYLPREDNISOLONE [Suspect]

REACTIONS (1)
  - HERPES ZOSTER [None]
